FAERS Safety Report 18325812 (Version 3)
Quarter: 2020Q4

REPORT INFORMATION
  Report Type: Report from Study
  Country: US (occurrence: US)
  Receive Date: 20200929
  Receipt Date: 20201228
  Transmission Date: 20210113
  Serious: No
  Sender: FDA-Public Use
  Company Number: NVSC2020US263881

PATIENT
  Sex: Male

DRUGS (2)
  1. TABRECTA [Suspect]
     Active Substance: CAPMATINIB
     Indication: PRODUCT USED FOR UNKNOWN INDICATION
     Dosage: UNK
     Route: 048
  2. TABRECTA [Suspect]
     Active Substance: CAPMATINIB
     Dosage: 150 MG
     Route: 048

REACTIONS (10)
  - Balance disorder [Unknown]
  - Nausea [Unknown]
  - Peripheral swelling [Unknown]
  - Pruritus [Unknown]
  - Vomiting [Unknown]
  - Platelet count decreased [Unknown]
  - Pain in extremity [Unknown]
  - Fatigue [Unknown]
  - Oedema peripheral [Unknown]
  - Paraesthesia [Unknown]
